FAERS Safety Report 12127501 (Version 1)
Quarter: 2016Q1

REPORT INFORMATION
  Report Type: Spontaneous
  Country: US (occurrence: US)
  Receive Date: 20160229
  Receipt Date: 20160229
  Transmission Date: 20160526
  Serious: Yes (Other)
  Sender: FDA-Public Use
  Company Number: US-SANOFI-AVENTIS-2011SA080743

PATIENT
  Age: 57 Year
  Sex: Female

DRUGS (4)
  1. APIDRA [Suspect]
     Active Substance: INSULIN GLULISINE
     Indication: TYPE 2 DIABETES MELLITUS
     Dosage: PRODUCT START DATE MENTIONED AS 8 MONTHS AGO DOSE:4 UNIT(S)
     Route: 058
     Dates: start: 201104
  2. SOLOSTAR [Concomitant]
     Active Substance: DEVICE
     Indication: TYPE 2 DIABETES MELLITUS
     Dosage: PRODUCT START DATE MENTIONED AS 8 MONTHS AGO
     Dates: start: 201104
  3. LANTUS [Concomitant]
     Active Substance: INSULIN GLARGINE
  4. APIDRA [Suspect]
     Active Substance: INSULIN GLULISINE
     Indication: TYPE 2 DIABETES MELLITUS
     Dosage: DOSE: 3-4 UNITS SLIDING SCALE
     Route: 058

REACTIONS (2)
  - Disability [Unknown]
  - Blood glucose increased [Recovered/Resolved]

NARRATIVE: CASE EVENT DATE: 20111207
